FAERS Safety Report 6284547-1 (Version None)
Quarter: 2009Q3

REPORT INFORMATION
  Report Type: 
  Country: None (occurrence: None)
  Receive Date: 20090723
  Receipt Date: 20090708
  Transmission Date: 20100115
  Serious: No
  Sender: FDA-Public Use
  Company Number: 2009008278

PATIENT
  Sex: Male

DRUGS (2)
  1. FENTORA [Suspect]
     Indication: CANCER PAIN
     Dosage: 200 MCG, BU; 400 MCG BU; 200 MCG BU
     Route: 002
  2. AVENZA (MORPHINE SULFATE) [Concomitant]

REACTIONS (3)
  - CONFUSIONAL STATE [None]
  - DRUG LEVEL ABOVE THERAPEUTIC [None]
  - DRUG PRESCRIBING ERROR [None]
